FAERS Safety Report 18382715 (Version 1)
Quarter: 2020Q4

REPORT INFORMATION
  Report Type: Spontaneous
  Country: US (occurrence: US)
  Receive Date: 20201013
  Receipt Date: 20201013
  Transmission Date: 20210114
  Serious: No
  Sender: FDA-Public Use
  Company Number: None

PATIENT
  Age: 69 Year
  Sex: Male

DRUGS (3)
  1. PREDNISONE. [Concomitant]
     Active Substance: PREDNISONE
  2. MYCOPHENOLATE 500 MG TABS [Suspect]
     Active Substance: MYCOPHENOLIC ACID
     Indication: TRANSPLANT
     Route: 048
     Dates: start: 20150314
  3. TACROLIMUS 1MG CAPS N/A [Suspect]
     Active Substance: TACROLIMUS
     Indication: TRANSPLANT
     Dosage: ?          OTHER FREQUENCY:AM AND PM;?
     Route: 048
     Dates: start: 20150314

REACTIONS (1)
  - Neoplasm malignant [None]
